FAERS Safety Report 5509053-0 (Version None)
Quarter: 2007Q4

REPORT INFORMATION
  Report Type: 
  Country: None (occurrence: None)
  Receive Date: 20071031
  Receipt Date: 20070727
  Transmission Date: 20080405
  Serious: Yes (Other)
  Sender: FDA-Public Use
  Company Number: 200615930BWH

PATIENT
  Age: 62 Year
  Sex: Male

DRUGS (4)
  1. NEXAVAR [Suspect]
     Indication: RENAL CELL CARCINOMA STAGE UNSPECIFIED
     Dosage: 200 MG, BID, ORAL 200 MG, QD, ORAL
     Route: 048
     Dates: start: 20060901, end: 20061019
  2. NEXAVAR [Suspect]
     Indication: RENAL CELL CARCINOMA STAGE UNSPECIFIED
     Dosage: 200 MG, BID, ORAL 200 MG, QD, ORAL
     Route: 048
     Dates: start: 20061022
  3. ALOPURINOL [Concomitant]
  4. TOPROL-XL [Concomitant]

REACTIONS (3)
  - BLOOD URINE PRESENT [None]
  - DYSPHONIA [None]
  - HEPATIC ENZYME INCREASED [None]
